FAERS Safety Report 13403823 (Version 2)
Quarter: 2017Q2

REPORT INFORMATION
  Report Type: Report from Study
  Country: US (occurrence: US)
  Receive Date: 20170405
  Receipt Date: 20170508
  Transmission Date: 20170830
  Serious: Yes (Hospitalization)
  Sender: FDA-Public Use
  Company Number: US-BAYER-2017-042424

PATIENT
  Age: 65 Year
  Sex: Male

DRUGS (3)
  1. STIVARGA [Suspect]
     Active Substance: REGORAFENIB
     Indication: COLORECTAL CANCER
     Dosage: 80 MG, QD
     Route: 048
     Dates: start: 20170329
  2. STIVARGA [Suspect]
     Active Substance: REGORAFENIB
     Indication: COLORECTAL CANCER
     Dosage: 120 MG, QD
     Route: 048
     Dates: start: 20170118, end: 20170312
  3. STIVARGA [Suspect]
     Active Substance: REGORAFENIB
     Indication: COLORECTAL CANCER
     Dosage: 60 MG, QD
     Route: 048
     Dates: start: 20170313, end: 20170328

REACTIONS (13)
  - Fatigue [None]
  - Dehydration [None]
  - Blister [Recovering/Resolving]
  - Pain [None]
  - Dyspnoea exertional [None]
  - Viral infection [None]
  - Wrong technique in product usage process [None]
  - Asthenia [None]
  - Stomatitis [None]
  - Palmar-plantar erythrodysaesthesia syndrome [None]
  - Blister [Recovered/Resolved]
  - Blood glucose increased [None]
  - Abdominal pain [None]

NARRATIVE: CASE EVENT DATE: 2017
